FAERS Safety Report 4940511-3 (Version None)
Quarter: 2006Q1

REPORT INFORMATION
  Report Type: 
  Country: None (occurrence: None)
  Receive Date: 20060112
  Receipt Date: 20050913
  Transmission Date: 20060701
  Serious: Yes (Hospitalization)
  Sender: FDA-Public Use
  Company Number: 2005127034

PATIENT
  Age: 80 Year
  Sex: Male

DRUGS (4)
  1. ATGAM [Suspect]
     Indication: APLASTIC ANAEMIA
     Dosage: 3000 MG (40 MG/KG)
     Dates: start: 20050912
  2. ATENOLOL [Concomitant]
  3. PREVACID [Concomitant]
  4. ZOCOR [Concomitant]

REACTIONS (1)
  - RASH ERYTHEMATOUS [None]
